FAERS Safety Report 23557807 (Version 2)
Quarter: 2024Q2

REPORT INFORMATION
  Report Type: Spontaneous
  Country: US (occurrence: None)
  Receive Date: 20240223
  Receipt Date: 20240417
  Transmission Date: 20240716
  Serious: No
  Sender: FDA-Public Use
  Company Number: 2024A043226

PATIENT
  Age: 12321 Day
  Sex: Female
  Weight: 96.2 kg

DRUGS (1)
  1. TEZEPELUMAB-EKKO [Suspect]
     Active Substance: TEZEPELUMAB-EKKO
     Dosage: 210.0MG UNKNOWN

REACTIONS (4)
  - Injection site mass [Unknown]
  - Injection site haemorrhage [Unknown]
  - Incorrect dose administered by device [Unknown]
  - Device leakage [Unknown]

NARRATIVE: CASE EVENT DATE: 20240216
